FAERS Safety Report 8484228-X (Version None)
Quarter: 2012Q3

REPORT INFORMATION
  Report Type: 
  Country: None (occurrence: None)
  Receive Date: 20120703
  Receipt Date: 20120622
  Transmission Date: 20120928
  Serious: Yes (Other)
  Sender: FDA-Public Use
  Company Number: US-SANOFI-AVENTIS-2012SA045156

PATIENT
  Sex: Female

DRUGS (4)
  1. ALLEGRA-D 12 HOUR [Suspect]
     Route: 048
     Dates: end: 20100101
  2. ALLEGRA-D 12 HOUR [Suspect]
     Route: 048
     Dates: start: 20110101
  3. PROAIR HFA [Concomitant]
     Indication: MULTIPLE ALLERGIES
     Dosage: DOSE:2 PUFF(S)
  4. ALLEGRA-D 12 HOUR [Suspect]
     Route: 048
     Dates: start: 20100101, end: 20110101

REACTIONS (3)
  - THYROID DISORDER [None]
  - MACULAR DEGENERATION [None]
  - KNEE ARTHROPLASTY [None]
